FAERS Safety Report 9788450 (Version 2)
Quarter: 2014Q1

REPORT INFORMATION
  Report Type: Spontaneous
  Country: IT (occurrence: IT)
  Receive Date: 20131230
  Receipt Date: 20140228
  Transmission Date: 20141002
  Serious: Yes (Hospitalization)
  Sender: FDA-Public Use
  Company Number: IT-PFIZER INC-2013369645

PATIENT
  Age: 63 Year
  Sex: Female

DRUGS (4)
  1. TRIATEC [Suspect]
     Indication: HYPERTENSION
     Dosage: 5 MG, DAILY
     Route: 048
     Dates: start: 20131106, end: 20131106
  2. TORADOL [Suspect]
     Indication: BACK PAIN
     Dosage: 10 MG, DAILY
     Route: 030
     Dates: start: 20131104, end: 20131106
  3. TORADOL [Suspect]
     Dosage: UNK
     Route: 065
     Dates: start: 20131223
  4. CONTRAMAL [Concomitant]
     Dosage: UNK

REACTIONS (5)
  - Blood pressure increased [Recovered/Resolved]
  - Chest pain [Recovered/Resolved]
  - Headache [Recovered/Resolved]
  - Vomiting [Recovered/Resolved]
  - Chromaturia [Unknown]
